FAERS Safety Report 12394069 (Version 5)
Quarter: 2018Q4

REPORT INFORMATION
  Report Type: Spontaneous
  Country: US (occurrence: US)
  Receive Date: 20160523
  Receipt Date: 20181019
  Transmission Date: 20190204
  Serious: No
  Sender: FDA-Public Use
  Company Number: US-009507513-1605USA009030

PATIENT
  Sex: Female

DRUGS (2)
  1. IMPLANON [Suspect]
     Active Substance: ETONOGESTREL
     Indication: CONTRACEPTION
     Dosage: UNK
     Route: 059
     Dates: start: 200706, end: 2008
  2. IMPLANON [Suspect]
     Active Substance: ETONOGESTREL
     Dosage: UNK, LEFT ARM (3-4 CM FROM ELBOW)
     Route: 059
     Dates: start: 20100407

REACTIONS (13)
  - Complication associated with device [Not Recovered/Not Resolved]
  - Incorrect product administration duration [Not Recovered/Not Resolved]
  - Complication of device removal [Not Recovered/Not Resolved]
  - Depression [Unknown]
  - Breast pain [Unknown]
  - Vaginal haemorrhage [Unknown]
  - Gastrooesophageal reflux disease [Unknown]
  - Abdominal pain lower [Unknown]
  - Ovarian cyst [Unknown]
  - Complication associated with device [Unknown]
  - Complication associated with device [Unknown]
  - Complication of device removal [Recovering/Resolving]
  - Asthma [Unknown]

NARRATIVE: CASE EVENT DATE: 201006
